FAERS Safety Report 14635362 (Version 1)
Quarter: 2018Q1

REPORT INFORMATION
  Report Type: Spontaneous
  Country: BR (occurrence: BR)
  Receive Date: 20180314
  Receipt Date: 20180314
  Transmission Date: 20180509
  Serious: Yes (Other)
  Sender: FDA-Public Use
  Company Number: BR-CIPLA LTD.-2018BR11486

PATIENT

DRUGS (2)
  1. PREDNISONE. [Suspect]
     Active Substance: PREDNISONE
     Indication: INCLUSION BODY MYOSITIS
     Dosage: 60 MG, PER A DAY
     Route: 065
  2. FOLIC ACID. [Suspect]
     Active Substance: FOLIC ACID
     Indication: INCLUSION BODY MYOSITIS
     Dosage: 5 MG, PER A DAY
     Route: 065

REACTIONS (1)
  - Oedema [Unknown]
